FAERS Safety Report 4292470-7 (Version None)
Quarter: 2004Q1

REPORT INFORMATION
  Report Type: 
  Country: None (occurrence: None)
  Receive Date: 20040126
  Receipt Date: 20030910
  Transmission Date: 20041129
  Serious: No
  Sender: FDA-Public Use
  Company Number: USA030946850

PATIENT
  Age: 68 Year
  Sex: Female
  Weight: 56 kg

DRUGS (8)
  1. FORTEO [Suspect]
     Indication: OSTEOPOROSIS
     Dosage: 20 UG/DAY
     Dates: start: 20030820
  2. PREDNISONE [Concomitant]
  3. VENTOLIN [Concomitant]
  4. FLOVENT [Concomitant]
  5. COUMADIN [Concomitant]
  6. CARDIZEM [Concomitant]
  7. DIGOXIN [Concomitant]
  8. ALBUTEROL [Concomitant]

REACTIONS (1)
  - ALOPECIA [None]
